FAERS Safety Report 10511354 (Version 1)
Quarter: 2014Q3

REPORT INFORMATION
  Report Type: Spontaneous
  Country: US (occurrence: None)
  Receive Date: 20140915
  Receipt Date: 20140915
  Transmission Date: 20150326
  Serious: Yes (Other)
  Sender: FDA-Public Use
  Company Number: 2014-US-008136

PATIENT
  Age: 47 Year
  Sex: Male
  Weight: 108.4 kg

DRUGS (15)
  1. XYREM [Suspect]
     Active Substance: SODIUM OXYBATE
     Indication: SOMNOLENCE
     Route: 048
     Dates: start: 201106, end: 2011
  2. FLUTICASONE [Concomitant]
     Active Substance: FLUTICASONE\FLUTICASONE PROPIONATE
  3. SUBOXONE (BUPRENORPHINE HYDROCHLORIDE, NALOXONE HYDROCHLORIDE) [Concomitant]
  4. PRILOSEC (OMEPRAZOLE MAGNESIUM) [Concomitant]
  5. NAPROSYN (NAPROXEN SODIUM) [Concomitant]
  6. LASIX [Concomitant]
     Active Substance: FUROSEMIDE
  7. PROVIGIL [Concomitant]
     Active Substance: MODAFINIL
  8. DOXEPIN HCL (DOXEPIN HYDROCHLORIDE) [Concomitant]
     Active Substance: DOXEPIN HYDROCHLORIDE
  9. PAXIL [Concomitant]
     Active Substance: PAROXETINE HYDROCHLORIDE
  10. LISINOPRIL. [Concomitant]
     Active Substance: LISINOPRIL
  11. METHYLPHENIDATE (METHYLPHENIDATE HYDROCHLORIDE0 [Concomitant]
  12. XYREM [Suspect]
     Active Substance: SODIUM OXYBATE
     Indication: NARCOLEPSY
     Route: 048
     Dates: start: 201106, end: 2011
  13. PROAIR HFA [Concomitant]
     Active Substance: ALBUTEROL SULFATE
  14. CETIRIZINE [Concomitant]
     Active Substance: CETIRIZINE HYDROCHLORIDE
  15. NEURONTIN [Concomitant]
     Active Substance: GABAPENTIN

REACTIONS (1)
  - Intentional overdose [None]

NARRATIVE: CASE EVENT DATE: 20140616
